FAERS Safety Report 26089569 (Version 1)
Quarter: 2025Q4

REPORT INFORMATION
  Report Type: Report from Study
  Country: US (occurrence: US)
  Receive Date: 20251125
  Receipt Date: 20251125
  Transmission Date: 20260118
  Serious: Yes (Hospitalization, Other)
  Sender: VERTEX
  Company Number: US-VERTEX PHARMACEUTICALS-2023-015318

PATIENT
  Age: 6 Year
  Sex: Male

DRUGS (1)
  1. TRIKAFTA [Suspect]
     Active Substance: ELEXACAFTOR\IVACAFTOR\TEZACAFTOR
     Indication: Cystic fibrosis
     Dosage: TWICE DAILY
     Dates: start: 20230908

REACTIONS (3)
  - Anaphylactic reaction [Recovered/Resolved]
  - Erythema [Unknown]
  - Scratch [Unknown]

NARRATIVE: CASE EVENT DATE: 20230908
